FAERS Safety Report 6963581-X (Version None)
Quarter: 2010Q3

REPORT INFORMATION
  Report Type: 
  Country: None (occurrence: None)
  Receive Date: 20100902
  Receipt Date: 20100826
  Transmission Date: 20110219
  Serious: Yes (Other)
  Sender: FDA-Public Use
  Company Number: CN-BAYER-201037208GPV

PATIENT
  Age: 61 Year

DRUGS (1)
  1. MOXIFLOXACIN [Suspect]
     Indication: INFECTION
     Route: 048

REACTIONS (1)
  - EXTRASYSTOLES [None]
